FAERS Safety Report 6813557-8 (Version None)
Quarter: 2010Q3

REPORT INFORMATION
  Report Type: 
  Country: None (occurrence: None)
  Receive Date: 20100701
  Receipt Date: 20100618
  Transmission Date: 20110219
  Serious: Yes (Hospitalization)
  Sender: FDA-Public Use
  Company Number: ES-ELI_LILLY_AND_COMPANY-ES201006005394

PATIENT
  Sex: Female

DRUGS (6)
  1. FORTEO [Suspect]
     Indication: OSTEOPOROSIS
     Dosage: 20 UG, DAILY (1/D)
     Route: 058
     Dates: start: 20090506
  2. OMEPRAZOLE [Concomitant]
     Indication: GASTRIC DISORDER
     Dosage: 20 MG, DAILY (1/D)
     Route: 065
  3. ATORVASTATIN CALCIUM [Concomitant]
     Indication: BLOOD CHOLESTEROL INCREASED
     Dosage: 80 MG, DAILY (1/D) AT NIGHT
     Route: 065
  4. ADIRO [Concomitant]
     Dosage: 100 MG, DAILY (1/D) AT MIDDAY
     Route: 065
  5. SINTROM [Concomitant]
     Indication: COAGULOPATHY
     Dosage: 4 MG, 2/D
     Route: 065
  6. SERC                               /00034201/ [Concomitant]
     Indication: DIZZINESS
     Dosage: 8 MG, EVERY 8 HRS
     Route: 065

REACTIONS (2)
  - ANGINA PECTORIS [None]
  - ARRHYTHMIA [None]
